FAERS Safety Report 4749173-1 (Version None)
Quarter: 2005Q3

REPORT INFORMATION
  Report Type: 
  Country: None (occurrence: None)
  Receive Date: 20050817
  Receipt Date: 20050804
  Transmission Date: 20060218
  Serious: Yes (Death)
  Sender: FDA-Public Use
  Company Number: 2005FR-00207

PATIENT
  Age: 92 Year
  Sex: Female
  Weight: 40 kg

DRUGS (4)
  1. IBUPROFEN [Suspect]
     Indication: CHEST PAIN
     Dosage: 400MG, ORAL
     Route: 048
     Dates: start: 20051202, end: 20041209
  2. PARACETAMOL [Concomitant]
  3. LACTULOSE [Concomitant]
  4. SENNA [Concomitant]

REACTIONS (7)
  - ABDOMINAL PAIN [None]
  - ABDOMINAL TENDERNESS [None]
  - BLOOD AMYLASE INCREASED [None]
  - BLOOD CREATININE INCREASED [None]
  - CONSTIPATION [None]
  - DEHYDRATION [None]
  - PANCREATITIS [None]
